FAERS Safety Report 16071073 (Version 2)
Quarter: 2019Q2

REPORT INFORMATION
  Report Type: Spontaneous
  Country: US (occurrence: US)
  Receive Date: 20190314
  Receipt Date: 20190422
  Transmission Date: 20190711
  Serious: No
  Sender: FDA-Public Use
  Company Number: US-PFIZER INC-2019097984

PATIENT
  Age: 64 Year
  Sex: Female
  Weight: 76.66 kg

DRUGS (1)
  1. ADVIL PM [Suspect]
     Active Substance: DIPHENHYDRAMINE CITRATE\IBUPROFEN
     Indication: INSOMNIA
     Dosage: UNK UNK, 1X/DAY, (ONE CAPLET BEFORE BED, HALF HOUR)
     Dates: end: 201902

REACTIONS (3)
  - Heart rate increased [Unknown]
  - Psychomotor hyperactivity [Unknown]
  - Palpitations [Unknown]
